FAERS Safety Report 7715454-2 (Version None)
Quarter: 2011Q3

REPORT INFORMATION
  Report Type: 
  Country: None (occurrence: None)
  Receive Date: 20110829
  Receipt Date: 20110823
  Transmission Date: 20111222
  Serious: Yes (Other)
  Sender: FDA-Public Use
  Company Number: NL-JNJFOC-20110407636

PATIENT
  Sex: Female

DRUGS (10)
  1. RITUXIMAB [Suspect]
     Route: 065
  2. PREDNISONE [Suspect]
     Indication: B-CELL LYMPHOMA
     Route: 065
  3. RITUXIMAB [Suspect]
     Indication: B-CELL LYMPHOMA
     Route: 065
  4. CYCLOPHOSPHAMIDE [Suspect]
     Indication: B-CELL LYMPHOMA
     Route: 065
  5. RITUXIMAB [Suspect]
     Route: 065
  6. DOXORUBICIN HYDROCHLORIDE [Suspect]
     Indication: B-CELL LYMPHOMA
     Route: 042
  7. RITUXIMAB [Suspect]
     Route: 065
  8. RITUXIMAB [Suspect]
     Route: 065
  9. RITUXIMAB [Suspect]
     Dosage: CYCLE 2
     Route: 065
  10. VINCRISTINE [Suspect]
     Indication: B-CELL LYMPHOMA
     Route: 065

REACTIONS (2)
  - PREMATURE DELIVERY [None]
  - MATERNAL EXPOSURE DURING PREGNANCY [None]
